FAERS Safety Report 5705519-9 (Version None)
Quarter: 2008Q2

REPORT INFORMATION
  Report Type: 
  Country: None (occurrence: None)
  Receive Date: 20080415
  Receipt Date: 20080404
  Transmission Date: 20081010
  Serious: Yes (Death)
  Sender: FDA-Public Use
  Company Number: US-BAXTER-2008BH003175

PATIENT
  Age: 77 Year
  Sex: Male

DRUGS (1)
  1. VANCOMYCIN [Suspect]
     Indication: ANTIBIOTIC PROPHYLAXIS
     Dosage: DOSE UNIT:UNKNOWN
     Route: 042
     Dates: start: 20080101, end: 20080101

REACTIONS (2)
  - HYPERSENSITIVITY [None]
  - RESPIRATORY ARREST [None]
